FAERS Safety Report 25463993 (Version 1)
Quarter: 2025Q2

REPORT INFORMATION
  Report Type: Spontaneous
  Country: CN (occurrence: CN)
  Receive Date: 20250621
  Receipt Date: 20250621
  Transmission Date: 20250717
  Serious: Yes (Other)
  Sender: ACCORD
  Company Number: CN-MLMSERVICE-20250603-PI528601-00152-1

PATIENT
  Age: 23 Year
  Sex: Female
  Weight: 60 kg

DRUGS (5)
  1. FLUOROURACIL [Suspect]
     Active Substance: FLUOROURACIL
     Indication: Developmental glaucoma
     Dates: start: 2015, end: 2015
  2. BIMATOPROST [Concomitant]
     Active Substance: BIMATOPROST
     Indication: Developmental glaucoma
     Dates: start: 2019
  3. BRIMONIDINE TARTRATE [Concomitant]
     Active Substance: BRIMONIDINE TARTRATE
     Indication: Developmental glaucoma
     Dates: start: 2019
  4. LEVOBUNOLOL HYDROCHLORIDE [Concomitant]
     Active Substance: LEVOBUNOLOL HYDROCHLORIDE
     Indication: Developmental glaucoma
     Dates: start: 2019
  5. FLUOROURACIL [Suspect]
     Active Substance: FLUOROURACIL
     Indication: Developmental glaucoma
     Dates: start: 2019, end: 2019

REACTIONS (1)
  - Corneal toxicity [Unknown]

NARRATIVE: CASE EVENT DATE: 20190101
